FAERS Safety Report 23311576 (Version 2)
Quarter: 2024Q1

REPORT INFORMATION
  Report Type: Spontaneous
  Country: PT (occurrence: PT)
  Receive Date: 20231219
  Receipt Date: 20240105
  Transmission Date: 20240410
  Serious: Yes (Death, Hospitalization, Other)
  Sender: FDA-Public Use
  Company Number: PT-009507513-2312PRT004838

PATIENT
  Age: 88 Year
  Sex: Male

DRUGS (1)
  1. DORAVIRINE [Suspect]
     Active Substance: DORAVIRINE
     Dosage: UNK
     Route: 048

REACTIONS (3)
  - Death [Fatal]
  - Haemorrhagic stroke [Unknown]
  - Hemiparesis [Unknown]
